FAERS Safety Report 11785782 (Version 1)
Quarter: 2015Q4

REPORT INFORMATION
  Report Type: Spontaneous
  Country: FR (occurrence: FR)
  Receive Date: 20151130
  Receipt Date: 20151130
  Transmission Date: 20160305
  Serious: Yes (Hospitalization, Other)
  Sender: FDA-Public Use
  Company Number: FR-GLAXOSMITHKLINE-FR2015GSK165144

PATIENT
  Age: 66 Year
  Sex: Female

DRUGS (4)
  1. VOGALENE [Concomitant]
     Active Substance: METOPIMAZINE
     Indication: GASTROENTERITIS
     Dosage: UNK
     Route: 048
     Dates: start: 20150728, end: 20150802
  2. CREON [Concomitant]
     Active Substance: PANCRELIPASE AMYLASE\PANCRELIPASE LIPASE\PANCRELIPASE PROTEASE
     Indication: GASTROENTERITIS
     Dosage: 25000 UNK, UNK
     Route: 048
     Dates: start: 20150727, end: 20150802
  3. ZINNAT [Suspect]
     Active Substance: CEFUROXIME AXETIL
     Indication: GASTROENTERITIS
     Dosage: UNK
     Route: 048
     Dates: start: 20150728, end: 20150802
  4. ERCEFURYL [Concomitant]
     Indication: GASTROENTERITIS
     Dosage: 200 MG, UNK
     Route: 048
     Dates: start: 20150728, end: 20150802

REACTIONS (3)
  - Intestinal haematoma [Recovered/Resolved]
  - Small intestinal obstruction [Recovered/Resolved]
  - Thrombocytopenia [Recovered/Resolved]

NARRATIVE: CASE EVENT DATE: 20150806
